FAERS Safety Report 6804954-5 (Version None)
Quarter: 2010Q2

REPORT INFORMATION
  Report Type: 
  Country: None (occurrence: None)
  Receive Date: 20100628
  Receipt Date: 20070802
  Transmission Date: 20101027
  Serious: No
  Sender: FDA-Public Use
  Company Number: US-PFIZER INC-2007052828

PATIENT
  Sex: Female
  Weight: 83.46 kg

DRUGS (7)
  1. GEODON [Suspect]
     Indication: BIPOLAR II DISORDER
     Route: 048
     Dates: start: 20070418
  2. XANAX [Concomitant]
     Indication: ANXIETY
  3. VALTREX [Concomitant]
     Indication: DEPRESSION
  4. IBUPROFEN [Concomitant]
  5. LEXAPRO [Concomitant]
     Indication: DEPRESSION
  6. LOESTRIN 1.5/30 [Concomitant]
  7. LAMICTAL [Concomitant]

REACTIONS (1)
  - OEDEMA PERIPHERAL [None]
